FAERS Safety Report 5684863-8 (Version None)
Quarter: 2008Q1

REPORT INFORMATION
  Report Type: 
  Country: None (occurrence: None)
  Receive Date: 20080328
  Receipt Date: 19910304
  Transmission Date: 20080703
  Serious: Yes (Death, Other)
  Sender: FDA-Public Use
  Company Number: US-ROCHE-16239

PATIENT
  Age: 70 Year
  Sex: Female

DRUGS (2)
  1. NAPROSYN [Suspect]
     Indication: DRUG USE FOR UNKNOWN INDICATION
     Route: 048
     Dates: end: 19891013
  2. VERAPAMIL [Suspect]
     Indication: DRUG USE FOR UNKNOWN INDICATION
     Route: 048
     Dates: end: 19891013

REACTIONS (5)
  - AGONAL RHYTHM [None]
  - CARDIAC ARREST [None]
  - COMA [None]
  - OVERDOSE [None]
  - RESPIRATORY ARREST [None]
